FAERS Safety Report 15117624 (Version 1)
Quarter: 2018Q3

REPORT INFORMATION
  Report Type: Spontaneous
  Country: GB (occurrence: GB)
  Receive Date: 20180706
  Receipt Date: 20180706
  Transmission Date: 20181010
  Serious: Yes (Hospitalization)
  Sender: FDA-Public Use
  Company Number: GB-MICRO LABS LIMITED-BB2018-01437

PATIENT
  Age: 78 Year
  Sex: Female

DRUGS (7)
  1. AMITRIPTYLINE [Suspect]
     Active Substance: AMITRIPTYLINE
     Dosage: AT NIGHT. STARTED 5 WEEKS AGO AND TITRATED FROM 10MG AT NIGHT TO 30MG AT NIGHT BY 10MG EVERY 2 WEEKS
     Route: 048
     Dates: start: 20180418, end: 20180502
  2. AMITRIPTYLINE [Suspect]
     Active Substance: AMITRIPTYLINE
     Dosage: AT NIGHT. STARTED 5 WEEKS AGO AND TITRATED FROM 10MG AT NIGHT TO 30MG AT NIGHT BY 10MG EVERY 2 WEEKS
     Route: 048
     Dates: start: 20180502, end: 20180516
  3. AMITRIPTYLINE [Suspect]
     Active Substance: AMITRIPTYLINE
     Dosage: AT NIGHT. STARTED 5 WEEKS AGO AND TITRATED FROM 10MG AT NIGHT TO 30MG AT NIGHT BY 10MG EVERY 2 WEEKS
     Route: 048
     Dates: start: 20180516, end: 20180523
  4. LOSARTAN. [Suspect]
     Active Substance: LOSARTAN
     Indication: HYPERTENSION
     Dosage: IN THE MORNING
     Route: 048
     Dates: end: 20180523
  5. SERTRALINE [Suspect]
     Active Substance: SERTRALINE HYDROCHLORIDE
     Dosage: IN THE MORNING.
     Route: 048
     Dates: end: 20180521
  6. OMEPRAZOLE. [Suspect]
     Active Substance: OMEPRAZOLE
     Route: 048
     Dates: end: 20180523
  7. HYDROXOCOBALAMIN [Concomitant]
     Active Substance: HYDROXOCOBALAMIN
     Dosage: 1MG/1ML

REACTIONS (3)
  - Confusional state [Unknown]
  - Dry mouth [Recovered/Resolved]
  - Hyponatraemia [Recovered/Resolved]

NARRATIVE: CASE EVENT DATE: 20180522
